FAERS Safety Report 10047499 (Version 2)
Quarter: 2014Q2

REPORT INFORMATION
  Report Type: Spontaneous
  Country: US (occurrence: US)
  Receive Date: 20140331
  Receipt Date: 20140613
  Transmission Date: 20141212
  Serious: No
  Sender: FDA-Public Use
  Company Number: US-TEVA-472250USA

PATIENT
  Age: 19 Year
  Sex: Female

DRUGS (2)
  1. PARAGARD 380A [Suspect]
     Indication: CONTRACEPTION
     Route: 015
     Dates: start: 201311, end: 201312
  2. PARAGARD 380A [Suspect]
     Route: 015
     Dates: start: 20130805, end: 20130916

REACTIONS (2)
  - Menstruation delayed [Recovered/Resolved]
  - Device expulsion [Recovered/Resolved]
